FAERS Safety Report 6772463-8 (Version None)
Quarter: 2010Q2

REPORT INFORMATION
  Report Type: 
  Country: None (occurrence: None)
  Receive Date: 20100616
  Receipt Date: 20090713
  Transmission Date: 20101027
  Serious: No
  Sender: FDA-Public Use
  Company Number: US-ASTRAZENECA-2009UW15273

PATIENT
  Age: 78 Year
  Sex: Male
  Weight: 64.4 kg

DRUGS (2)
  1. PULMICORT FLEXHALER [Suspect]
     Indication: ASTHMA
     Route: 055
  2. PULMICORT FLEXHALER [Suspect]
     Route: 055

REACTIONS (4)
  - DRY MOUTH [None]
  - RHINORRHOEA [None]
  - STOMATITIS [None]
  - THROAT IRRITATION [None]
